APPROVED DRUG PRODUCT: LORAZEPAM
Active Ingredient: LORAZEPAM
Strength: 1MG
Dosage Form/Route: TABLET;ORAL
Application: A071087 | Product #001
Applicant: WATSON LABORATORIES INC
Approved: Mar 23, 1987 | RLD: No | RS: No | Type: DISCN